FAERS Safety Report 15269841 (Version 1)
Quarter: 2018Q3

REPORT INFORMATION
  Report Type: Spontaneous
  Country: US (occurrence: US)
  Receive Date: 20180726
  Receipt Date: 20180726
  Transmission Date: 20181010
  Serious: Yes (Other)
  Sender: FDA-Public Use
  Company Number: None

PATIENT
  Age: 67 Year
  Sex: Male
  Weight: 81 kg

DRUGS (2)
  1. ADALIMUMAB [Suspect]
     Active Substance: ADALIMUMAB
     Indication: PSORIASIS
     Route: 058
     Dates: start: 20180410, end: 20180717
  2. IXEKIZUMAB [Concomitant]
     Active Substance: IXEKIZUMAB
     Dates: start: 20180215, end: 20180701

REACTIONS (4)
  - Movement disorder [None]
  - Psoriasis [None]
  - Psoriatic arthropathy [None]
  - Pain [None]

NARRATIVE: CASE EVENT DATE: 20180717
